FAERS Safety Report 23239994 (Version 2)
Quarter: 2023Q4

REPORT INFORMATION
  Report Type: Spontaneous
  Country: US (occurrence: US)
  Receive Date: 20231129
  Receipt Date: 20231220
  Transmission Date: 20240109
  Serious: No
  Sender: FDA-Public Use
  Company Number: US-PFIZER INC-202300392954

PATIENT
  Age: 25 Year
  Sex: Female
  Weight: 49.44 kg

DRUGS (1)
  1. MIDAZOLAM [Suspect]
     Active Substance: MIDAZOLAM
     Indication: Sedation
     Dosage: FREQUENCY: 1X, (5 MG/ML)(SINGLE DOSE FLIP TOP VIAL )
     Route: 042
     Dates: start: 20231114, end: 20231114

REACTIONS (1)
  - Drug ineffective [Unknown]

NARRATIVE: CASE EVENT DATE: 20231114
